FAERS Safety Report 22223237 (Version 1)
Quarter: 2023Q2

REPORT INFORMATION
  Report Type: Spontaneous
  Country: CN (occurrence: CN)
  Receive Date: 20230418
  Receipt Date: 20230418
  Transmission Date: 20230721
  Serious: Yes (Hospitalization, Other)
  Sender: FDA-Public Use
  Company Number: None

PATIENT
  Age: 4 Year
  Sex: Male
  Weight: 13.5 kg

DRUGS (6)
  1. CYCLOPHOSPHAMIDE [Suspect]
     Active Substance: CYCLOPHOSPHAMIDE
     Indication: Neuroblastoma
     Dosage: 0.9 G, QD, DILUTED WITH 250 ML OF (4: 1) GLUCOSE SODIUM CHLORIDE
     Route: 041
     Dates: start: 20230127, end: 20230128
  2. DEXTROSE\SODIUM CHLORIDE [Suspect]
     Active Substance: DEXTROSE\SODIUM CHLORIDE
     Indication: Medication dilution
     Dosage: (4:1) 250 ML, QD, USED TO DILUTE 0.9 G CYCLOPHOSPHAMIDE
     Route: 041
     Dates: start: 20230127, end: 20230128
  3. SODIUM CHLORIDE [Suspect]
     Active Substance: SODIUM CHLORIDE
     Indication: Medication dilution
     Dosage: 0.9% 250 ML, QD, USED TO DILUTE 12.5 MG EPIRUBICIN HYDROCHLORIDE, DOSAGE FORM: INJECTION)
     Route: 041
     Dates: start: 20230127, end: 20230129
  4. SODIUM CHLORIDE [Suspect]
     Active Substance: SODIUM CHLORIDE
     Dosage: 0.9% 50 ML, QD, USED TO DILUTE 1.5 MG VINDESINE SULFATE, (DOSAGE FORM: INJECTION)
     Route: 041
     Dates: start: 20230127, end: 20230127
  5. EPIRUBICIN [Suspect]
     Active Substance: EPIRUBICIN
     Indication: Neuroblastoma
     Dosage: 12.5 MG, QD, DILUTED WITH 250 ML OF 0.9% SODIUM CHLORIDE
     Route: 041
     Dates: start: 20230127, end: 20230129
  6. VINDESINE SULFATE [Suspect]
     Active Substance: VINDESINE SULFATE
     Indication: Neuroblastoma
     Dosage: 1.5 MG, QD, DILUTED WITH 50 ML OF 0.9% SODIUM CHLORIDE
     Route: 041
     Dates: start: 20230127, end: 20230127

REACTIONS (1)
  - Myelosuppression [Recovering/Resolving]

NARRATIVE: CASE EVENT DATE: 20230203
